FAERS Safety Report 6740919 (Version 1)
Quarter: 2020Q3

REPORT INFORMATION
  Report Type: Report from Study
  Country: US (occurrence: US)
  Receive Date: 20080828
  Receipt Date: 20080828
  Transmission Date: 20201104
  Serious: Yes (Death, Hospitalization)
  Sender: FDA-Public Use
  Company Number: HQWYE877708APR05

PATIENT
  Age: 48 Year
  Sex: Male
  Weight: 116.4 kg

DRUGS (14)
  1. TEMSIROLIMUS. [Suspect]
     Active Substance: TEMSIROLIMUS
     Route: 042
     Dates: start: 20050307, end: 20050307
  2. DILAUDID [Concomitant]
     Active Substance: HYDROMORPHONE HYDROCHLORIDE
     Dosage: ^20 Q4H^
  3. ARANESP [Concomitant]
     Active Substance: DARBEPOETIN ALFA
     Route: 058
  4. DURAGESIC [Concomitant]
     Active Substance: FENTANYL
     Dosage: 100 MCG
     Route: 061
     Dates: start: 2005
  5. COLACE [Concomitant]
     Active Substance: DOCUSATE SODIUM
  6. VITAMINS NOS [Concomitant]
     Active Substance: VITAMINS
  7. CODEINE [Concomitant]
     Active Substance: CODEINE
     Dosage: 30 MG Q6H P.R.N.
     Route: 048
  8. ATIVAN [Concomitant]
     Active Substance: LORAZEPAM
     Dosage: 1 MG Q.H.S. P.R.N.
  9. TEMSIROLIMUS. [Suspect]
     Active Substance: TEMSIROLIMUS
     Route: 042
     Dates: start: 20050215, end: 20050215
  10. DURAGESIC [Concomitant]
     Active Substance: FENTANYL
     Dosage: DOSE NOT PROVIDED
     Route: 061
     Dates: end: 2005
  11. ZOMETA [Concomitant]
     Active Substance: ZOLEDRONIC ACID
     Route: 042
  12. ZOLOFT [Concomitant]
     Active Substance: SERTRALINE HYDROCHLORIDE
     Dosage: 50 (UNITS NOT PROVIDED) DAILY
     Route: 065
  13. TEMSIROLIMUS. [Suspect]
     Active Substance: TEMSIROLIMUS
     Indication: RENAL CELL CARCINOMA
     Route: 042
     Dates: start: 20040517, end: 20050214
  14. PROZAC [Concomitant]
     Active Substance: FLUOXETINE HYDROCHLORIDE
     Dosage: ^30^

REACTIONS (1)
  - Pneumonitis [Fatal]

NARRATIVE: CASE EVENT DATE: 20050403
